FAERS Safety Report 17931901 (Version 1)
Quarter: 2020Q2

REPORT INFORMATION
  Report Type: Spontaneous
  Country: US (occurrence: US)
  Receive Date: 20200624
  Receipt Date: 20200624
  Transmission Date: 20200714
  Serious: No
  Sender: FDA-Public Use
  Company Number: US-JNJFOC-20200609890

PATIENT

DRUGS (6)
  1. PEPCID [Suspect]
     Active Substance: FAMOTIDINE
     Indication: DERMATITIS CONTACT
     Route: 048
  2. HYDROCORTISONE. [Concomitant]
     Active Substance: HYDROCORTISONE
     Indication: DERMATITIS CONTACT
     Dosage: APPLY A THIN FILM TO AFFECTED AREA AS NEEDED FOR 5-7 DAYS
     Route: 061
  3. NEUTROGENA OIL FREE ACNE WASH REDNESS SOOTHING FACIAL CLEANSER [Concomitant]
     Active Substance: SALICYLIC ACID
     Indication: REMOVAL OF INERT MATTER FROM SKIN OR SUBCUTANEOUS TISSUE
     Dates: start: 20200529
  4. ALLEGRA [Concomitant]
     Active Substance: FEXOFENADINE HYDROCHLORIDE
     Indication: DERMATITIS CONTACT
     Dosage: UP TO TWICE DAILY
     Route: 065
  5. ZYRTEC [Concomitant]
     Active Substance: CETIRIZINE HYDROCHLORIDE
     Indication: DERMATITIS CONTACT
     Dosage: UP TO TWICE DAILY
     Route: 065
  6. BENADRYL [Suspect]
     Active Substance: DIPHENHYDRAMINE HYDROCHLORIDE
     Indication: DERMATITIS CONTACT
     Dosage: 25-50 MG; AS NEEDED
     Route: 065

REACTIONS (2)
  - Product use in unapproved indication [Unknown]
  - Off label use [Unknown]
